FAERS Safety Report 4700629-7 (Version None)
Quarter: 2005Q2

REPORT INFORMATION
  Report Type: 
  Country: None (occurrence: None)
  Receive Date: 20050627
  Receipt Date: 20050613
  Transmission Date: 20051028
  Serious: Yes (Other)
  Sender: FDA-Public Use
  Company Number: 2005088776

PATIENT
  Age: 33 Year
  Sex: Female

DRUGS (5)
  1. MEDROXYPROGESTERONE SUSPENSION, STERILE (MEDROXYPROGESTERONE ACETATE) [Suspect]
     Dosage: SEE IMAGE
     Dates: start: 20030901, end: 20030901
  2. MEDROXYPROGESTERONE SUSPENSION, STERILE (MEDROXYPROGESTERONE ACETATE) [Suspect]
     Dosage: SEE IMAGE
     Dates: start: 20050302, end: 20050302
  3. MEDROXYPROGESTERONE SUSPENSION, STERILE (MEDROXYPROGESTERONE ACETATE) [Suspect]
     Dosage: SEE IMAGE
     Dates: start: 20050610, end: 20050610
  4. DOMPERIDONE (DOMPERIDONE) [Concomitant]
  5. OMEPRAZOLE [Concomitant]

REACTIONS (2)
  - GASTRITIS EROSIVE [None]
  - INTENTIONAL MISUSE [None]
